FAERS Safety Report 9462690 (Version 1)
Quarter: 2013Q3

REPORT INFORMATION
  Report Type: Spontaneous
  Country: US (occurrence: None)
  Receive Date: 20130814
  Receipt Date: 20130814
  Transmission Date: 20140515
  Serious: Yes (Death)
  Sender: FDA-Public Use
  Company Number: B0914637A

PATIENT
  Age: 41 Year
  Sex: Male

DRUGS (12)
  1. NELARABINE [Suspect]
     Indication: T-CELL TYPE ACUTE LEUKAEMIA
  2. DAUNORUBICIN [Concomitant]
  3. VINCRISTINE [Concomitant]
  4. CYCLOPHOSPHAMIDE [Concomitant]
  5. DOXORUBICIN [Concomitant]
  6. DEXAMETHASONE [Concomitant]
  7. METHOTREXATE [Concomitant]
  8. MERCAPTOPURNE [Concomitant]
  9. PREDNISONE [Concomitant]
  10. COLASPASE [Concomitant]
  11. CYTARABINE [Concomitant]
  12. HYDROCORTISONE [Concomitant]

REACTIONS (7)
  - Cervical myelopathy [None]
  - Myelopathy [None]
  - Leukocytosis [None]
  - Anaemia [None]
  - Thrombocytopenia [None]
  - Leukaemia recurrent [None]
  - Spinal cord disorder [None]
